FAERS Safety Report 4534280-9 (Version None)
Quarter: 2004Q4

REPORT INFORMATION
  Report Type: 
  Country: None (occurrence: None)
  Receive Date: 20041220
  Receipt Date: 20041220
  Transmission Date: 20050328
  Serious: No
  Sender: FDA-Public Use
  Company Number: None

PATIENT
  Age: 48 Year
  Sex: Male
  Weight: 75 kg

DRUGS (1)
  1. GAMMAGARD S/D [Suspect]
     Dosage: 75GM IV Q6WKS
     Route: 042
     Dates: start: 20040401

REACTIONS (2)
  - VISION BLURRED [None]
  - VISUAL DISTURBANCE [None]
